FAERS Safety Report 19514344 (Version 1)
Quarter: 2021Q3

REPORT INFORMATION
  Report Type: Spontaneous
  Country: KR (occurrence: KR)
  Receive Date: 20210709
  Receipt Date: 20210709
  Transmission Date: 20211014
  Serious: Yes (Other)
  Sender: FDA-Public Use
  Company Number: KR-SA-2021SA222836

PATIENT
  Age: 52 Year
  Sex: Female

DRUGS (22)
  1. ISONIAZID. [Concomitant]
     Active Substance: ISONIAZID
     Indication: DISSEMINATED TUBERCULOSIS
  2. AMIKACIN. [Concomitant]
     Active Substance: AMIKACIN
     Indication: DISSEMINATED TUBERCULOSIS
  3. MEROPENEM. [Concomitant]
     Active Substance: MEROPENEM
     Indication: MENINGITIS TUBERCULOUS
     Dosage: UNK
  4. RIFAMPICIN [Suspect]
     Active Substance: RIFAMPIN
     Indication: MENINGITIS TUBERCULOUS
     Dosage: UNK
     Route: 048
  5. VANCOMYCIN [Concomitant]
     Active Substance: VANCOMYCIN
     Indication: EVIDENCE BASED TREATMENT
     Dosage: UNK
     Dates: start: 20191018
  6. ISONIAZID. [Concomitant]
     Active Substance: ISONIAZID
     Indication: MENINGITIS TUBERCULOUS
     Dosage: 300 MG, QD
     Route: 048
  7. LINEZOLID. [Concomitant]
     Active Substance: LINEZOLID
     Indication: DISSEMINATED TUBERCULOSIS
  8. MOXIFLOXACIN. [Concomitant]
     Active Substance: MOXIFLOXACIN
     Indication: DISSEMINATED TUBERCULOSIS
  9. ETHAMBUTOL [Suspect]
     Active Substance: ETHAMBUTOL HYDROCHLORIDE
     Indication: MENINGITIS TUBERCULOUS
     Dosage: 1200 MG, QD
     Route: 048
  10. CYCLOSERINE. [Concomitant]
     Active Substance: CYCLOSERINE
     Indication: DISSEMINATED TUBERCULOSIS
  11. AMOXICILLIN/CLAVULANIC ACID [Concomitant]
     Active Substance: AMOXICILLIN\CLAVULANIC ACID
     Indication: MENINGITIS TUBERCULOUS
     Dosage: UNK
  12. PIPERACILLIN/TAZOBACTAM [Concomitant]
     Active Substance: PIPERACILLIN SODIUM\TAZOBACTAM SODIUM
     Indication: EVIDENCE BASED TREATMENT
     Dosage: UNK
     Dates: start: 20191018
  13. DEXAMETHASONE. [Concomitant]
     Active Substance: DEXAMETHASONE
     Indication: REDUCTION OF INCREASED INTRACRANIAL PRESSURE
     Dosage: UNK
     Dates: start: 201911
  14. LINEZOLID. [Concomitant]
     Active Substance: LINEZOLID
     Indication: MENINGITIS TUBERCULOUS
     Dosage: 600 MG, QD
     Route: 042
  15. AMIKACIN. [Concomitant]
     Active Substance: AMIKACIN
     Indication: MENINGITIS TUBERCULOUS
     Dosage: 900 MG, QD
     Route: 042
  16. ETHAMBUTOL [Suspect]
     Active Substance: ETHAMBUTOL HYDROCHLORIDE
     Indication: DISSEMINATED TUBERCULOSIS
  17. MOXIFLOXACIN. [Concomitant]
     Active Substance: MOXIFLOXACIN
     Indication: MENINGITIS TUBERCULOUS
     Dosage: 400 MG, QD
     Route: 042
  18. MEROPENEM. [Concomitant]
     Active Substance: MEROPENEM
     Indication: DISSEMINATED TUBERCULOSIS
  19. AMOXICILLIN/CLAVULANIC ACID [Concomitant]
     Active Substance: AMOXICILLIN\CLAVULANIC ACID
     Indication: DISSEMINATED TUBERCULOSIS
  20. RIFAMPICIN [Suspect]
     Active Substance: RIFAMPIN
     Indication: DISSEMINATED TUBERCULOSIS
  21. MANNITOL. [Concomitant]
     Active Substance: MANNITOL
     Indication: REDUCTION OF INCREASED INTRACRANIAL PRESSURE
     Dosage: UNK
     Dates: start: 201911
  22. CYCLOSERINE. [Concomitant]
     Active Substance: CYCLOSERINE
     Indication: MENINGITIS TUBERCULOUS
     Dosage: UNK

REACTIONS (1)
  - Gastrointestinal haemorrhage [Recovered/Resolved]
